FAERS Safety Report 14614474 (Version 1)
Quarter: 2018Q1

REPORT INFORMATION
  Report Type: Spontaneous
  Country: US (occurrence: US)
  Receive Date: 20180308
  Receipt Date: 20180308
  Transmission Date: 20180509
  Serious: No
  Sender: FDA-Public Use
  Company Number: None

PATIENT
  Age: 49 Year
  Sex: Female

DRUGS (6)
  1. QUETIAPINE ER [Suspect]
     Active Substance: QUETIAPINE
     Route: 048
     Dates: start: 20180206, end: 20180308
  2. LEVOTHYROXINE. [Concomitant]
     Active Substance: LEVOTHYROXINE
     Dates: start: 20160213
  3. SIMVASTATIN 20MG [Concomitant]
     Active Substance: SIMVASTATIN
     Dates: start: 20160120
  4. VIENVA [Concomitant]
     Dates: start: 20171207
  5. VENLAFAXINE ER 150MG [Concomitant]
     Active Substance: VENLAFAXINE HYDROCHLORIDE
     Dates: start: 20151118
  6. FERROUS SULFATE. [Concomitant]
     Active Substance: FERROUS SULFATE
     Dates: start: 20171129

REACTIONS (1)
  - Drug ineffective [None]

NARRATIVE: CASE EVENT DATE: 20180307
